FAERS Safety Report 7451277-X (Version None)
Quarter: 2011Q2

REPORT INFORMATION
  Report Type: 
  Country: None (occurrence: None)
  Receive Date: 20110502
  Receipt Date: 20101119
  Transmission Date: 20111010
  Serious: Yes (Hospitalization, Other)
  Sender: FDA-Public Use
  Company Number: US-BAYER-201030070NA

PATIENT
  Age: 17 Year
  Sex: Female
  Weight: 176.42 kg

DRUGS (8)
  1. MORPHINE SULFATE [Concomitant]
  2. YASMIN [Suspect]
     Indication: PRODUCT USED FOR UNKNOWN INDICATION
     Dosage: UNK UNK, UNK
     Route: 048
     Dates: start: 20030101, end: 20060101
  3. CLONAZEPAM [Concomitant]
  4. REGLAN [Concomitant]
  5. AMITRIPTYLINE [Concomitant]
  6. PREDNISONE [Concomitant]
  7. RANITIDINE [Concomitant]
  8. AMBIEN [Concomitant]

REACTIONS (10)
  - CHOLECYSTITIS [None]
  - SOCIAL PHOBIA [None]
  - INFECTION [None]
  - ENAMEL ANOMALY [None]
  - POST-TRAUMATIC STRESS DISORDER [None]
  - DEHYDRATION [None]
  - PAIN [None]
  - GALLBLADDER DISORDER [None]
  - ANTISOCIAL BEHAVIOUR [None]
  - FAECAL VOMITING [None]
